FAERS Safety Report 21816124 (Version 1)
Quarter: 2023Q1

REPORT INFORMATION
  Report Type: Spontaneous
  Country: US (occurrence: US)
  Receive Date: 20230104
  Receipt Date: 20230104
  Transmission Date: 20230417
  Serious: No
  Sender: FDA-Public Use
  Company Number: US-BRISTOL-MYERS SQUIBB COMPANY-2022-160495

PATIENT
  Age: 70 Year
  Sex: Female

DRUGS (1)
  1. ORENCIA [Suspect]
     Active Substance: ABATACEPT
     Indication: Rheumatoid arthritis
     Dosage: STRENGTH: 125 MG/ML, ROUTE; SQ
     Route: 058
     Dates: start: 20201025

REACTIONS (3)
  - Rheumatoid arthritis [Unknown]
  - Treatment noncompliance [Unknown]
  - Rash pruritic [Recovered/Resolved]
